FAERS Safety Report 11074166 (Version 2)
Quarter: 2015Q2

REPORT INFORMATION
  Report Type: Spontaneous
  Country: US (occurrence: None)
  Receive Date: 20150427
  Receipt Date: 20150515
  Transmission Date: 20150821
  Serious: Yes (Death, Hospitalization, Other)
  Sender: FDA-Public Use
  Company Number: ADR-2015-00708

PATIENT
  Age: 34 Year
  Sex: Female

DRUGS (2)
  1. SEIZURE MEDICATION (UNKNOWN) [Suspect]
     Active Substance: UNSPECIFIED INGREDIENT
     Indication: SEIZURE
  2. LIORESAL [Suspect]
     Active Substance: BACLOFEN
     Indication: MUSCLE SPASTICITY
     Dosage: 800 MCG/DAY

REACTIONS (5)
  - Metabolic disorder [None]
  - Blood sodium decreased [None]
  - Respiratory rate decreased [None]
  - Respiratory disorder [None]
  - Brain injury [None]

NARRATIVE: CASE EVENT DATE: 20150403
